FAERS Safety Report 15887487 (Version 1)
Quarter: 2019Q1

REPORT INFORMATION
  Report Type: Spontaneous
  Country: UA (occurrence: UA)
  Receive Date: 20190130
  Receipt Date: 20190130
  Transmission Date: 20190417
  Serious: Yes (Death)
  Sender: FDA-Public Use
  Company Number: UA-ASTRAZENECA-2019SE17290

PATIENT
  Age: 25724 Day
  Sex: Female

DRUGS (1)
  1. BRILINTA [Suspect]
     Active Substance: TICAGRELOR
     Dosage: 90 UG TWO TABLETS
     Route: 048
     Dates: start: 20190115, end: 20190115

REACTIONS (3)
  - Pulmonary oedema [Fatal]
  - Cardiogenic shock [Fatal]
  - Myocardial infarction [Fatal]

NARRATIVE: CASE EVENT DATE: 20190115
